FAERS Safety Report 4718109-1 (Version None)
Quarter: 2005Q3

REPORT INFORMATION
  Report Type: 
  Country: None (occurrence: None)
  Receive Date: 20050718
  Receipt Date: 20050328
  Transmission Date: 20060218
  Serious: No
  Sender: FDA-Public Use
  Company Number: 2005000666

PATIENT
  Age: 68 Year
  Sex: Male

DRUGS (9)
  1. TARCEVA [Suspect]
     Indication: NON-SMALL CELL LUNG CANCER
     Dosage: 150 MG (QD), ORAL
     Route: 048
     Dates: start: 20050211
  2. GLYBURIDE [Concomitant]
  3. ACTOS [Concomitant]
  4. IRON (IRON) [Concomitant]
  5. PROCRIT [Concomitant]
  6. VITAMIN C (ASCORBIC ACID) [Concomitant]
  7. POTASSIUM CHLORIDE [Concomitant]
  8. TIMOLOL MALEATE [Concomitant]
  9. PAIN MEDS [Concomitant]

REACTIONS (1)
  - PLATELET COUNT DECREASED [None]
